FAERS Safety Report 7970986-7 (Version None)
Quarter: 2011Q4

REPORT INFORMATION
  Report Type: 
  Country: None (occurrence: None)
  Receive Date: 20111212
  Receipt Date: 20110718
  Transmission Date: 20120403
  Serious: Yes (Other)
  Sender: FDA-Public Use
  Company Number: US-TYCO HEALTHCARE/MALLINCKRODT-T201101403

PATIENT
  Sex: Female
  Weight: 78.005 kg

DRUGS (1)
  1. OPTIMARK [Suspect]
     Indication: NUCLEAR MAGNETIC RESONANCE IMAGING
     Dosage: 17 ML, SINGLE
     Route: 042
     Dates: start: 20110701, end: 20110701

REACTIONS (7)
  - LOSS OF CONSCIOUSNESS [None]
  - ERYTHEMA [None]
  - ASTHENIA [None]
  - MALAISE [None]
  - NAUSEA [None]
  - DIARRHOEA [None]
  - INCORRECT DRUG ADMINISTRATION RATE [None]
